FAERS Safety Report 9288319 (Version 2)
Quarter: 2013Q2

REPORT INFORMATION
  Report Type: Spontaneous
  Country: US (occurrence: US)
  Receive Date: 20130514
  Receipt Date: 20130516
  Transmission Date: 20140414
  Serious: No
  Sender: FDA-Public Use
  Company Number: US-B.I. PHARMACEUTICALS,INC./RIDGEFIELD-2013-BI-13331BP

PATIENT
  Age: 59 Year
  Sex: Female
  Weight: 82 kg

DRUGS (3)
  1. SPIRIVA [Suspect]
     Indication: CHRONIC OBSTRUCTIVE PULMONARY DISEASE
     Dosage: 18 MCG
     Route: 055
     Dates: start: 2010
  2. ADVAIR [Concomitant]
     Indication: CHRONIC OBSTRUCTIVE PULMONARY DISEASE
     Dosage: STRENGTH: 250 MCG / 50 MCG; DAILY DOSE: 500 MCG / 100 MCG
     Route: 055
     Dates: start: 2007
  3. ALBUTEROL [Concomitant]
     Indication: CHRONIC OBSTRUCTIVE PULMONARY DISEASE
     Dosage: 8 PUF
     Route: 055
     Dates: start: 2003

REACTIONS (6)
  - Dyspnoea exertional [Not Recovered/Not Resolved]
  - Pneumonia [Recovered/Resolved]
  - Ear infection [Recovered/Resolved]
  - Pharyngitis streptococcal [Recovered/Resolved]
  - Product quality issue [Recovered/Resolved]
  - Product quality issue [Recovered/Resolved]
